FAERS Safety Report 16740620 (Version 1)
Quarter: 2019Q3

REPORT INFORMATION
  Report Type: Spontaneous
  Country: NL (occurrence: NL)
  Receive Date: 20190826
  Receipt Date: 20190826
  Transmission Date: 20191005
  Serious: Yes (Death, Other)
  Sender: FDA-Public Use
  Company Number: NL-MYLANLABS-2019M1079540

PATIENT
  Age: 78 Year
  Sex: Male

DRUGS (1)
  1. TRANEXAMIC ACID. [Suspect]
     Active Substance: TRANEXAMIC ACID
     Indication: PRODUCT USED FOR UNKNOWN INDICATION
     Dosage: UNK
     Route: 065

REACTIONS (8)
  - Wrong product administered [Fatal]
  - Hypertension [Unknown]
  - Condition aggravated [Unknown]
  - Intentional product misuse [Unknown]
  - Myoclonus [Unknown]
  - Pain [Unknown]
  - Hypercapnia [Unknown]
  - Arrhythmia [Unknown]
